FAERS Safety Report 16348559 (Version 1)
Quarter: 2019Q2

REPORT INFORMATION
  Report Type: Spontaneous
  Country: JP (occurrence: JP)
  Receive Date: 20190523
  Receipt Date: 20190523
  Transmission Date: 20190711
  Serious: Yes (Other)
  Sender: FDA-Public Use
  Company Number: PHJP2019JP005507

PATIENT
  Age: 60 Year
  Sex: Male
  Weight: 56 kg

DRUGS (1)
  1. NEORAL [Suspect]
     Active Substance: CYCLOSPORINE
     Indication: PRODUCT USED FOR UNKNOWN INDICATION
     Dosage: 150 MG, BID 100MG IN THE MORNING (TWO 50-MG CAPSULES), 50MG IN THE EARLY EVENING (ONE 50-MG CAPSULE)
     Route: 048

REACTIONS (2)
  - Lung neoplasm malignant [Unknown]
  - Immunosuppressant drug level decreased [Unknown]
